FAERS Safety Report 6457585-3 (Version None)
Quarter: 2009Q4

REPORT INFORMATION
  Report Type: 
  Country: None (occurrence: None)
  Receive Date: 20091125
  Receipt Date: 20091120
  Transmission Date: 20100525
  Serious: Yes (Life-Threatening, Hospitalization)
  Sender: FDA-Public Use
  Company Number: PHHY2009DE50694

PATIENT
  Sex: Female
  Weight: 133 kg

DRUGS (28)
  1. ALISKIREN ALI+ [Suspect]
     Indication: HYPERTENSION
     Dosage: 300 MG PER DAY
     Dates: start: 20080902, end: 20090401
  2. METFORMIN HCL [Suspect]
     Indication: DIABETES MELLITUS
     Dosage: 1 DF, BID
     Dates: start: 20080902, end: 20090401
  3. GLIBENCLAMIDE [Suspect]
     Indication: DIABETES MELLITUS
     Dosage: 1 DF, BID
     Dates: start: 20070103, end: 20090401
  4. SPIRO COMP. [Suspect]
     Indication: HYPERTENSION
     Dosage: 1 DF, BID
     Dates: start: 20031001, end: 20090401
  5. SPIRO COMP. [Suspect]
     Dosage: 100 MG PER DAY
     Dates: start: 20090101
  6. MOXONIDINE [Suspect]
     Indication: HYPERTENSION
     Dosage: 0.2 MG, TID
     Dates: start: 20080902, end: 20090401
  7. BAYOTENSIN [Concomitant]
     Indication: HYPERTENSION
     Dosage: UNK
     Dates: end: 20080824
  8. AMLODIPINE [Concomitant]
     Indication: HYPERTENSION
     Dosage: 10 MG PER DAY
     Dates: start: 20090122, end: 20090401
  9. AMLODIPINE [Concomitant]
     Indication: CARDIAC FAILURE
  10. XIPAMIDE [Concomitant]
     Indication: HYPERTENSION
     Dosage: 40 MG PER DAY
     Dates: end: 20080824
  11. METOPROLOL [Concomitant]
     Indication: HYPERTENSION
     Dosage: 100 MG, BID
     Dates: start: 20020821
  12. CIBADREX [Concomitant]
     Indication: HYPERTENSION
     Dosage: 10 MG PER DAY
     Dates: start: 20010501
  13. KERLONE [Concomitant]
     Indication: HYPERTENSION
     Dosage: 20 MG PER DAY
     Dates: end: 20080824
  14. DIGITOXIN INJ [Concomitant]
     Indication: HYPERTENSION
     Dosage: 7 MG PER DAY
  15. DIGITOXIN INJ [Concomitant]
     Indication: CARDIAC FAILURE
  16. FUROSEMIDE [Concomitant]
     Indication: HYPERTENSION
     Dosage: 40 MG PER DAY
     Dates: end: 20080824
  17. TORSEMIDE [Concomitant]
     Indication: HYPERTENSION
     Dosage: 15 MG PER DAY
     Dates: start: 20090201
  18. HYDROCHLOROTHIAZIDE [Concomitant]
     Indication: HYPERTENSION
     Dosage: 25 MG PER DAY
     Dates: end: 20090401
  19. ALLOPURINOL [Concomitant]
     Indication: HYPERURICAEMIA
     Dosage: 100 UNK, QD
     Dates: start: 20031112
  20. BENAZEPRIL HYDROCHLORIDE [Concomitant]
     Indication: HYPERTENSION
     Dosage: 10 MG, QD
     Dates: start: 20010528, end: 20090401
  21. EPOETIN ALFA [Concomitant]
     Indication: IRON DEFICIENCY
     Dosage: ONCE PER WEEK
     Dates: start: 20090401, end: 20090401
  22. FALITHROM [Concomitant]
     Dosage: UNK
  23. FERRO [Concomitant]
     Indication: IRON DEFICIENCY
     Dosage: UNK
     Dates: start: 20030101, end: 20090401
  24. FERRLECIT [Concomitant]
     Indication: IRON DEFICIENCY
     Dosage: ONCE PER WEEK
     Dates: start: 20090401, end: 20090401
  25. INSULIN [Concomitant]
     Dosage: UNK
     Dates: start: 20090401
  26. OMEPRAZOLE [Concomitant]
     Indication: ABDOMINAL DISCOMFORT
     Dosage: 40 MG, UNK
     Dates: start: 20080902, end: 20090401
  27. SIMVASTATIN [Concomitant]
     Indication: HYPERCHOLESTEROLAEMIA
     Dosage: 20 UNK, UNK
     Dates: start: 20090401
  28. TORASEMIDE [Concomitant]
     Indication: HYPERTENSION
     Dosage: 10 MG, UNK
     Dates: start: 20080902

REACTIONS (2)
  - HAEMODIALYSIS [None]
  - RENAL FAILURE [None]
